FAERS Safety Report 17715298 (Version 2)
Quarter: 2020Q2

REPORT INFORMATION
  Report Type: Report from Study
  Country: US (occurrence: US)
  Receive Date: 20200427
  Receipt Date: 20200610
  Transmission Date: 20200714
  Serious: Yes (Hospitalization)
  Sender: FDA-Public Use
  Company Number: US-ACTELION-A-US2019-195871

PATIENT
  Age: 75 Year
  Sex: Male
  Weight: 94.79 kg

DRUGS (12)
  1. ADEMPAS [Concomitant]
     Active Substance: RIOCIGUAT
     Indication: PULMONARY ARTERIAL HYPERTENSION
     Dosage: UNK
     Route: 048
     Dates: start: 20180206
  2. OXYGEN. [Concomitant]
     Active Substance: OXYGEN
  3. OMEPRAZOLE. [Concomitant]
     Active Substance: OMEPRAZOLE
  4. FLUTICASONE FUROATE W/VILANTEROL [Concomitant]
     Active Substance: FLUTICASONE FUROATE\VILANTEROL TRIFENATATE
  5. UPTRAVI [Suspect]
     Active Substance: SELEXIPAG
     Indication: PULMONARY ARTERIAL HYPERTENSION
     Dosage: 1600 MCG, BID
     Route: 048
  6. UPTRAVI [Suspect]
     Active Substance: SELEXIPAG
     Dosage: 200 MCG, BID
     Route: 048
  7. XARELTO [Suspect]
     Active Substance: RIVAROXABAN
     Indication: PRODUCT USED FOR UNKNOWN INDICATION
     Route: 048
  8. AMIODARONE [Suspect]
     Active Substance: AMIODARONE
     Indication: PRODUCT USED FOR UNKNOWN INDICATION
     Dosage: UNK
     Route: 048
  9. ADEMPAS [Concomitant]
     Active Substance: RIOCIGUAT
     Dosage: 2.5 MG, TID
     Route: 048
  10. AMBRISENTAN [Concomitant]
     Active Substance: AMBRISENTAN
  11. TORSEMIDE. [Concomitant]
     Active Substance: TORSEMIDE
  12. UMECLIDINIUM W/VILANTEROL [Concomitant]

REACTIONS (14)
  - Feeling abnormal [Unknown]
  - Hypotension [Recovered/Resolved]
  - Dyspnoea [Recovering/Resolving]
  - Nausea [Unknown]
  - Infection [Recovered/Resolved]
  - Pneumonia [Recovering/Resolving]
  - Oxygen consumption increased [Unknown]
  - Anaemia [Recovering/Resolving]
  - Diarrhoea [Unknown]
  - Dizziness [Unknown]
  - Transfusion [Unknown]
  - Heart rate increased [Recovered/Resolved]
  - Abdominal discomfort [Unknown]
  - Headache [Recovering/Resolving]

NARRATIVE: CASE EVENT DATE: 20200406
